FAERS Safety Report 8610160-4 (Version None)
Quarter: 2012Q3

REPORT INFORMATION
  Report Type: 
  Country: None (occurrence: None)
  Receive Date: 20120822
  Receipt Date: 20120816
  Transmission Date: 20120928
  Serious: No
  Sender: FDA-Public Use
  Company Number: US-BIOGENIDEC-2012BI031958

PATIENT
  Sex: Female

DRUGS (2)
  1. TYSABRI [Suspect]
     Indication: MULTIPLE SCLEROSIS
     Route: 042
     Dates: start: 20041101, end: 20050201
  2. TYSABRI [Suspect]
     Route: 042
     Dates: start: 20070518

REACTIONS (3)
  - HEART RATE INCREASED [None]
  - DYSPNOEA [None]
  - CHEST DISCOMFORT [None]
